FAERS Safety Report 11321639 (Version 1)
Quarter: 2015Q3

REPORT INFORMATION
  Report Type: Report from Study
  Country: US (occurrence: US)
  Receive Date: 20150729
  Receipt Date: 20150729
  Transmission Date: 20151125
  Serious: Yes (Death, Other)
  Sender: FDA-Public Use
  Company Number: US-TEVA-564890USA

PATIENT
  Sex: Female

DRUGS (4)
  1. CLOZAPINE. [Suspect]
     Active Substance: CLOZAPINE
     Indication: PRODUCT USED FOR UNKNOWN INDICATION
     Route: 048
  2. LITHIUM. [Concomitant]
     Active Substance: LITHIUM
  3. NUVIGIL [Concomitant]
     Active Substance: ARMODAFINIL
  4. TYLENOL [Concomitant]
     Active Substance: ACETAMINOPHEN
     Dosage: PRN

REACTIONS (1)
  - Death [Fatal]
